FAERS Safety Report 6138309-6 (Version None)
Quarter: 2009Q1

REPORT INFORMATION
  Report Type: 
  Country: None (occurrence: None)
  Receive Date: 20090331
  Receipt Date: 20090323
  Transmission Date: 20090719
  Serious: Yes (Death, Hospitalization)
  Sender: FDA-Public Use
  Company Number: US-GILEAD-2009-0020872

PATIENT
  Sex: Male

DRUGS (12)
  1. LETAIRIS [Suspect]
     Indication: PULMONARY ARTERIAL HYPERTENSION
     Route: 048
  2. WARFARIN SODIUM [Concomitant]
  3. ALBUTEROL [Concomitant]
  4. DILTIAZEM [Concomitant]
  5. DIGOXIN [Concomitant]
  6. TORSEMIDE [Concomitant]
  7. QUINAPRIL [Concomitant]
  8. PULMICORT-100 [Concomitant]
  9. COMBIVENT [Concomitant]
  10. MIACALCIN [Concomitant]
  11. GENTAMICIN [Concomitant]
  12. MULTI-VITAMINS [Concomitant]

REACTIONS (1)
  - DEATH [None]
